FAERS Safety Report 9006271 (Version 1)
Quarter: 2013Q1

REPORT INFORMATION
  Report Type: Spontaneous
  Country: US (occurrence: US)
  Receive Date: 20130110
  Receipt Date: 20130110
  Transmission Date: 20140127
  Serious: Yes (Life-Threatening, Hospitalization, Disabling)
  Sender: FDA-Public Use
  Company Number: US-009507513-0901USA02198

PATIENT
  Age: 16 Year
  Sex: Female
  Weight: 56.7 kg

DRUGS (2)
  1. SINGULAIR [Suspect]
     Indication: HYPERSENSITIVITY
     Dosage: 10 MG, QD
     Route: 048
     Dates: start: 20080201, end: 20080726
  2. ALLEGRA-D [Concomitant]

REACTIONS (2)
  - Suicide attempt [Unknown]
  - Overdose [Unknown]
